FAERS Safety Report 4294657-6 (Version None)
Quarter: 2004Q1

REPORT INFORMATION
  Report Type: 
  Country: None (occurrence: None)
  Receive Date: 20040213
  Receipt Date: 20040129
  Transmission Date: 20041129
  Serious: Yes (Hospitalization)
  Sender: FDA-Public Use
  Company Number: AU-GLAXOSMITHKLINE-A0495834A

PATIENT
  Age: 50 Year
  Sex: Male

DRUGS (3)
  1. LAMIVUDINE [Suspect]
     Indication: HEPATITIS B
     Dosage: 100MG PER DAY
     Route: 048
     Dates: start: 20020812, end: 20030811
  2. LAMIVUDINE [Suspect]
     Dosage: 100MG PER DAY
     Route: 048
     Dates: start: 20031014
  3. VITAMIN B COMPLEX CAP [Concomitant]
     Route: 048
     Dates: start: 20020715, end: 20030301

REACTIONS (7)
  - ASCITES [None]
  - ATELECTASIS [None]
  - HEPATIC CIRRHOSIS [None]
  - HEPATIC NEOPLASM MALIGNANT [None]
  - LIVER DISORDER [None]
  - PLEURAL EFFUSION [None]
  - SPLENOMEGALY [None]
